FAERS Safety Report 20045098 (Version 1)
Quarter: 2021Q4

REPORT INFORMATION
  Report Type: Spontaneous
  Country: CN (occurrence: CN)
  Receive Date: 20211108
  Receipt Date: 20211108
  Transmission Date: 20220303
  Serious: Yes (Hospitalization)
  Sender: FDA-Public Use
  Company Number: CN-SA-SAC20211106000301

PATIENT
  Age: 42 Year
  Sex: Male
  Weight: 58 kg

DRUGS (2)
  1. ELOXATIN [Suspect]
     Active Substance: OXALIPLATIN
     Indication: Acquired immunodeficiency syndrome
     Dosage: 140 MG, QD
     Route: 041
     Dates: start: 20211008, end: 20211009
  2. DEXTROSE [Concomitant]
     Active Substance: DEXTROSE
     Indication: Colon cancer
     Dosage: 250 ML, QD
     Route: 041
     Dates: start: 20211008, end: 20211009

REACTIONS (4)
  - Flushing [Recovered/Resolved]
  - Chest discomfort [Recovered/Resolved]
  - Vomiting [Recovered/Resolved]
  - Product use in unapproved indication [Unknown]

NARRATIVE: CASE EVENT DATE: 20211009
